FAERS Safety Report 19283346 (Version 2)
Quarter: 2021Q3

REPORT INFORMATION
  Report Type: Report from Study
  Country: None (occurrence: US)
  Receive Date: 20210521
  Receipt Date: 20210722
  Transmission Date: 20211014
  Serious: Yes (Hospitalization)
  Sender: FDA-Public Use
  Company Number: US-ULTRAGENYX PHARMACEUTICAL INC.-US-UGNX-21-00120

PATIENT
  Age: 9 Year
  Sex: Female
  Weight: 54.6 kg

DRUGS (4)
  1. DOJOLVI [Suspect]
     Active Substance: TRIHEPTANOIN
     Dosage: 7ML SIX TIMES AND 6ML ONCE DAILY, VIA G?TUBE
  2. DANTROLENE. [Concomitant]
     Active Substance: DANTROLENE SODIUM
     Indication: RHABDOMYOLYSIS
     Route: 048
  3. DOJOLVI [Suspect]
     Active Substance: TRIHEPTANOIN
     Indication: VERY LONG-CHAIN ACYL-COENZYME A DEHYDROGENASE DEFICIENCY
     Dosage: 7ML SIX TIMES AND 6ML ONCE DAILY
     Route: 048
     Dates: start: 20200901
  4. CARNITOR [Concomitant]
     Active Substance: LEVOCARNITINE
     Indication: PRODUCT USED FOR UNKNOWN INDICATION

REACTIONS (1)
  - Rhabdomyolysis [Recovered/Resolved]

NARRATIVE: CASE EVENT DATE: 20210501
